FAERS Safety Report 5387048-8 (Version None)
Quarter: 2007Q3

REPORT INFORMATION
  Report Type: 
  Country: None (occurrence: None)
  Receive Date: 20070713
  Receipt Date: 20070705
  Transmission Date: 20080115
  Serious: Yes (Other)
  Sender: FDA-Public Use
  Company Number: GB-ABBOTT-07P-167-0370362-00

PATIENT
  Sex: Male

DRUGS (1)
  1. ERYTHROMYCIN BASE FILMTABS [Suspect]
     Indication: ACNE
     Route: 048
     Dates: start: 20070313, end: 20070320

REACTIONS (2)
  - C-REACTIVE PROTEIN INCREASED [None]
  - RED BLOOD CELL SEDIMENTATION RATE INCREASED [None]
